FAERS Safety Report 6368423-1 (Version None)
Quarter: 2009Q4

REPORT INFORMATION
  Report Type: 
  Country: None (occurrence: None)
  Receive Date: 20090831
  Receipt Date: 20090629
  Transmission Date: 20100525
  Serious: Yes (Other)
  Sender: FDA-Public Use
  Company Number: 200209USA

PATIENT
  Age: 38 Year
  Sex: Female
  Weight: 63.5036 kg

DRUGS (3)
  1. PLAN B [Suspect]
     Indication: POST COITAL CONTRACEPTION
     Dosage: 1.5 MG (0.75 MG, 2 IN 1 D), ORAL (0.75 MG), ORAL
     Route: 048
     Dates: start: 20090314, end: 20090315
  2. PLAN B [Suspect]
     Indication: POST COITAL CONTRACEPTION
     Dosage: 1.5 MG (0.75 MG, 2 IN 1 D), ORAL (0.75 MG), ORAL
     Route: 048
     Dates: start: 20090629
  3. PHENTERMINE [Suspect]
     Indication: WEIGHT DECREASED
     Dosage: (AS REQUIRED), ORAL
     Route: 048
     Dates: start: 20090629

REACTIONS (7)
  - ABDOMINAL PAIN [None]
  - BREAST TENDERNESS [None]
  - DRUG INEFFECTIVE [None]
  - ECTOPIC PREGNANCY [None]
  - MENSTRUATION IRREGULAR [None]
  - PELVIC PAIN [None]
  - POLLAKIURIA [None]
